FAERS Safety Report 5633941-8 (Version None)
Quarter: 2008Q1

REPORT INFORMATION
  Report Type: 
  Country: None (occurrence: None)
  Receive Date: 20080215
  Receipt Date: 20080203
  Transmission Date: 20080703
  Serious: Yes (Death, Hospitalization)
  Sender: FDA-Public Use
  Company Number: 2008S1001798

PATIENT
  Age: 74 Year
  Sex: Female

DRUGS (1)
  1. METFORMIN HCL [Suspect]
     Dosage: 1.7 GM; DAILY, 1.7 GM; DAILY

REACTIONS (8)
  - CONTINUOUS HAEMODIAFILTRATION [None]
  - DIABETIC NEPHROPATHY [None]
  - DRUG RESISTANCE [None]
  - GENERAL PHYSICAL HEALTH DETERIORATION [None]
  - HAEMODIALYSIS [None]
  - LACTIC ACIDOSIS [None]
  - RENAL FAILURE ACUTE [None]
  - SHOCK [None]
